FAERS Safety Report 5591395-4 (Version None)
Quarter: 2008Q1

REPORT INFORMATION
  Report Type: 
  Country: None (occurrence: None)
  Receive Date: 20080111
  Receipt Date: 20080111
  Transmission Date: 20080703
  Serious: Yes (Other)
  Sender: FDA-Public Use
  Company Number: None

PATIENT
  Sex: Female
  Weight: 58.514 kg

DRUGS (8)
  1. FOSAMAX [Suspect]
     Indication: HIP ARTHROPLASTY
     Dosage: 70 MG -ONCE-  WEEKLY
     Dates: start: 20000228, end: 20071231
  2. FOSAMAX [Suspect]
     Indication: OSTEOARTHRITIS
     Dosage: 70 MG -ONCE-  WEEKLY
     Dates: start: 20000228, end: 20071231
  3. FOSAMAX [Suspect]
     Indication: PROPHYLAXIS
     Dosage: 70 MG -ONCE-  WEEKLY
     Dates: start: 20000228, end: 20071231
  4. CALCIUM GLUCONATE [Concomitant]
  5. FOLIC ACID [Concomitant]
  6. VITAMIN D [Concomitant]
  7. VITAMIN B6 [Concomitant]
  8. ASPIRIN [Concomitant]

REACTIONS (3)
  - ARTHRALGIA [None]
  - BONE PAIN [None]
  - MYALGIA [None]
